FAERS Safety Report 5188038-0 (Version None)
Quarter: 2006Q4

REPORT INFORMATION
  Report Type: 
  Country: None (occurrence: None)
  Receive Date: 20061221
  Receipt Date: 20061009
  Transmission Date: 20070319
  Serious: Yes (Hospitalization)
  Sender: FDA-Public Use
  Company Number: GB-BRISTOL-MYERS SQUIBB COMPANY-13535877

PATIENT
  Age: 72 Year
  Sex: Female

DRUGS (8)
  1. TAXOL [Suspect]
     Indication: OVARIAN CANCER
     Dates: end: 20060601
  2. CARBOPLATIN [Suspect]
     Indication: OVARIAN CANCER
  3. GLICLAZIDE [Concomitant]
  4. GLICLAZIDE [Concomitant]
  5. AMLODIPINE [Concomitant]
  6. ROSIGLITAZONE [Concomitant]
  7. CANDESARTAN [Concomitant]
  8. WARFARIN SODIUM [Concomitant]

REACTIONS (1)
  - MANIA [None]
